FAERS Safety Report 4486771-7 (Version None)
Quarter: 2004Q4

REPORT INFORMATION
  Report Type: 
  Country: None (occurrence: None)
  Receive Date: 20041027
  Receipt Date: 20030919
  Transmission Date: 20050328
  Serious: Yes (Hospitalization)
  Sender: FDA-Public Use
  Company Number: CA-MERCK-0309CAN00088

PATIENT
  Age: 64 Year
  Sex: Female

DRUGS (1)
  1. VIOXX [Suspect]
     Indication: SPONDYLITIS
     Route: 048
     Dates: start: 20010101

REACTIONS (4)
  - ANGINA PECTORIS [None]
  - HEART INJURY [None]
  - MYOCARDIAL INFARCTION [None]
  - THROMBOSIS [None]
